FAERS Safety Report 13347481 (Version 2)
Quarter: 2017Q2

REPORT INFORMATION
  Report Type: Spontaneous
  Country: JP (occurrence: JP)
  Receive Date: 20170317
  Receipt Date: 20170420
  Transmission Date: 20170830
  Serious: Yes (Other)
  Sender: FDA-Public Use
  Company Number: PHJP2017JP008418

PATIENT
  Sex: Female

DRUGS (1)
  1. EXELON PATCH [Suspect]
     Active Substance: RIVASTIGMINE
     Indication: DEMENTIA ALZHEIMER^S TYPE
     Dosage: 18 MG, (PATCH10, 9.5 MG/24H), QD
     Route: 062

REACTIONS (4)
  - Cognitive disorder [Unknown]
  - Gastrointestinal disorder [Unknown]
  - Subarachnoid haemorrhage [Unknown]
  - Hydrocephalus [Unknown]
